FAERS Safety Report 12682127 (Version 1)
Quarter: 2016Q3

REPORT INFORMATION
  Report Type: Spontaneous
  Country: US (occurrence: US)
  Receive Date: 20160824
  Receipt Date: 20160824
  Transmission Date: 20161109
  Serious: No
  Sender: FDA-Public Use
  Company Number: US-JUBILANT HOLLISTERSTIER LLC-1056718

PATIENT
  Age: 57 Year
  Sex: Female

DRUGS (7)
  1. ZOLOFT [Concomitant]
     Active Substance: SERTRALINE HYDROCHLORIDE
     Route: 048
  2. ZYRTEC [Concomitant]
     Active Substance: CETIRIZINE HYDROCHLORIDE
     Route: 048
  3. MOLDS, RUSTS AND SMUTS, CANDIDA ALBICANS [Suspect]
     Active Substance: CANDIDA ALBICANS
     Indication: OFF LABEL USE
     Route: 026
     Dates: start: 20160111, end: 20160111
  4. LIDOCAINE. [Suspect]
     Active Substance: LIDOCAINE
     Route: 026
  5. FLUTAMIDE. [Concomitant]
     Active Substance: FLUTAMIDE
     Route: 048
  6. GLUCOSAMINE [Concomitant]
     Active Substance: GLUCOSAMINE
     Route: 048
  7. SINGULAIR [Concomitant]
     Active Substance: MONTELUKAST SODIUM
     Route: 048

REACTIONS (4)
  - Swelling [Recovered/Resolved]
  - Injection site discomfort [Recovered/Resolved]
  - Injection site hypoaesthesia [Recovered/Resolved]
  - Pain [Recovered/Resolved]

NARRATIVE: CASE EVENT DATE: 20160111
